FAERS Safety Report 23293933 (Version 1)
Quarter: 2023Q4

REPORT INFORMATION
  Report Type: Spontaneous
  Country: US (occurrence: US)
  Receive Date: 20231213
  Receipt Date: 20231213
  Transmission Date: 20240110
  Serious: No
  Sender: FDA-Public Use
  Company Number: US-REATA PHARMACEUTICALS INC.-2023USRTAOMA000124

PATIENT

DRUGS (1)
  1. SKYCLARYS [Suspect]
     Active Substance: OMAVELOXOLONE
     Indication: Friedreich^s ataxia
     Dosage: 150 MILLIGRAM, QD
     Route: 048
     Dates: start: 20230719, end: 20230926

REACTIONS (6)
  - Anxiety [Unknown]
  - Hyperhidrosis [Unknown]
  - Agitation [Unknown]
  - Mood altered [Unknown]
  - Heart rate increased [Unknown]
  - Muscle spasms [Unknown]

NARRATIVE: CASE EVENT DATE: 20230701
